FAERS Safety Report 9910358 (Version 3)
Quarter: 2014Q2

REPORT INFORMATION
  Report Type: Spontaneous
  Country: US (occurrence: US)
  Receive Date: 20140219
  Receipt Date: 20140416
  Transmission Date: 20141212
  Serious: Yes (Other)
  Sender: FDA-Public Use
  Company Number: US-TMC-CABO-14003904

PATIENT
  Age: 71 Year
  Sex: Male

DRUGS (13)
  1. COMETRIQ [Suspect]
     Indication: THYROID CANCER
     Dosage: 100 MG, QD
     Route: 048
     Dates: start: 20131220
  2. COMETRIQ [Suspect]
     Dosage: 120 MG, QD
     Route: 048
     Dates: start: 20140108, end: 20140129
  3. COMETRIQ [Suspect]
     Dosage: 100 MG, QD
     Route: 048
     Dates: start: 20140130
  4. ALLOPURINOL [Concomitant]
  5. ASPIRIN [Concomitant]
  6. AVODART [Concomitant]
  7. DIOVAN [Concomitant]
  8. FISH OIL [Concomitant]
  9. HYDROCODONE [Concomitant]
  10. VENLAFAXINE [Concomitant]
  11. ZOLPIDEM [Concomitant]
  12. LIDOCAINE VISCOUS [Concomitant]
  13. SYNTHROID [Concomitant]

REACTIONS (18)
  - Labyrinthitis [Recovering/Resolving]
  - Vertigo [Recovering/Resolving]
  - Presyncope [Unknown]
  - Dyspnoea [Unknown]
  - Hyperhidrosis [Unknown]
  - Muscle spasms [Unknown]
  - Pharyngitis [Recovering/Resolving]
  - Constipation [Unknown]
  - Oral pain [Not Recovered/Not Resolved]
  - Stomatitis [Unknown]
  - Dysgeusia [Recovering/Resolving]
  - Decreased appetite [Recovering/Resolving]
  - Fatigue [Recovering/Resolving]
  - Hair colour changes [Unknown]
  - Dysphonia [Unknown]
  - Dizziness [Unknown]
  - Ageusia [Unknown]
  - Hypothyroidism [Unknown]
